FAERS Safety Report 7064329-3 (Version None)
Quarter: 2010Q4

REPORT INFORMATION
  Report Type: 
  Country: None (occurrence: None)
  Receive Date: 20101027
  Receipt Date: 20101015
  Transmission Date: 20110411
  Serious: Yes (Congenital Anomaly, Other)
  Sender: FDA-Public Use
  Company Number: NL-TYCO HEALTHCARE/MALLINCKRODT-T201002145

PATIENT
  Age: 1 Month
  Sex: Female

DRUGS (4)
  1. FLUOXETINE [Suspect]
     Dosage: UNK
  2. VITAMIN B12                        /00056201/ [Suspect]
     Dosage: UNK
  3. NITRAZEPAM [Suspect]
     Dosage: UNK
  4. TOBACCO [Suspect]
     Dosage: UNK

REACTIONS (3)
  - DRUG EXPOSURE DURING PREGNANCY [None]
  - FOETAL TOBACCO EXPOSURE [None]
  - PYLORIC STENOSIS [None]
